FAERS Safety Report 10755625 (Version 1)
Quarter: 2015Q1

REPORT INFORMATION
  Report Type: Spontaneous
  Country: US (occurrence: None)
  Receive Date: 20150123
  Receipt Date: 20150123
  Transmission Date: 20150721
  Serious: No
  Sender: FDA-Public Use
  Company Number: 2014TUS010336

PATIENT
  Age: 77 Year
  Sex: Female
  Weight: 68.9 kg

DRUGS (5)
  1. MVI (VITAMINS NOS) [Concomitant]
  2. IMODIUM [Concomitant]
     Active Substance: LOPERAMIDE HYDROCHLORIDE
  3. DILTIAZEM [Concomitant]
     Active Substance: DILTIAZEM
  4. SYNTHROID [Concomitant]
     Active Substance: LEVOTHYROXINE SODIUM
  5. ENTYVIO [Suspect]
     Active Substance: VEDOLIZUMAB
     Indication: CROHN^S DISEASE
     Dosage: FIRST DOSE, 4,9 ML STERILE H2O IN 250 ML NS
     Route: 042
     Dates: start: 20141003, end: 20141003

REACTIONS (2)
  - Oedema peripheral [None]
  - Face oedema [None]

NARRATIVE: CASE EVENT DATE: 20141018
